FAERS Safety Report 25730274 (Version 3)
Quarter: 2025Q4

REPORT INFORMATION
  Report Type: Spontaneous
  Country: US (occurrence: None)
  Receive Date: 20250827
  Receipt Date: 20251024
  Transmission Date: 20260118
  Serious: Yes (Hospitalization)
  Sender: UCB
  Company Number: US-UCBSA-2025023387

PATIENT

DRUGS (2)
  1. RYSTIGGO [Suspect]
     Active Substance: ROZANOLIXIZUMAB-NOLI
     Indication: Myasthenia gravis
     Dosage: 560 MILLIGRAM, WEEKLY (QW) FOR 6 WEEKS, REPEAT CYCLE 4 WEEKS AFTER THE LAST INFUSION
  2. IV admin [Concomitant]
     Indication: Product used for unknown indication
     Dosage: UNK (IV ADMIN SET 16)

REACTIONS (4)
  - Hospitalisation [Recovered/Resolved]
  - Malaise [Unknown]
  - Pain [Unknown]
  - Urinary tract infection [Not Recovered/Not Resolved]
